FAERS Safety Report 26164639 (Version 1)
Quarter: 2025Q4

REPORT INFORMATION
  Report Type: Spontaneous
  Country: US (occurrence: US)
  Receive Date: 20251216
  Receipt Date: 20251216
  Transmission Date: 20260118
  Serious: Yes (Hospitalization, Other)
  Sender: ADMA BIOLOGICS
  Company Number: US-ADMA BIOLOGICS INC.-US-2025ADM000396

PATIENT
  Age: 33 Year
  Sex: Female

DRUGS (4)
  1. ASCENIV [Suspect]
     Active Substance: HUMAN IMMUNOGLOBULIN G
     Indication: Demyelinating polyneuropathy
     Dosage: UNK, MONTHLY
  2. METHYLPREDNISOLONE [Suspect]
     Active Substance: METHYLPREDNISOLONE
     Indication: Demyelinating polyneuropathy
     Dosage: UNK, UNK
  3. MYCOPHENOLATE MOFETIL [Suspect]
     Active Substance: MYCOPHENOLATE MOFETIL
     Indication: Demyelinating polyneuropathy
     Dosage: UNK
     Route: 065
  4. UNSPECIFIED INGREDIENT [Suspect]
     Active Substance: UNSPECIFIED INGREDIENT
     Indication: Demyelinating polyneuropathy
     Dosage: UNK
     Route: 065

REACTIONS (4)
  - Invasive ductal breast carcinoma [Unknown]
  - Deafness neurosensory [Unknown]
  - Condition aggravated [Unknown]
  - Product use in unapproved indication [Unknown]
